FAERS Safety Report 21012253 (Version 1)
Quarter: 2022Q2

REPORT INFORMATION
  Report Type: Spontaneous
  Country: JP (occurrence: JP)
  Receive Date: 20220627
  Receipt Date: 20220627
  Transmission Date: 20220721
  Serious: Yes (Death, Hospitalization, Other)
  Sender: FDA-Public Use
  Company Number: JP-JAZZ-2022-JP-021444

PATIENT
  Age: 50 Year
  Sex: Male
  Weight: 60.9 kg

DRUGS (5)
  1. DEFITELIO [Suspect]
     Active Substance: DEFIBROTIDE SODIUM
     Indication: Venoocclusive liver disease
     Dosage: 25 MILLIGRAM/KILOGRAM, QD (DAILY)
     Route: 042
     Dates: start: 20220221, end: 20220328
  2. DEFITELIO [Suspect]
     Active Substance: DEFIBROTIDE SODIUM
     Dosage: 25 MILLIGRAM/KILOGRAM, QD (24 HOURS)
     Route: 042
     Dates: start: 20220427, end: 20220506
  3. HEPARIN [Concomitant]
     Active Substance: HEPARIN SODIUM
     Dosage: UNK
     Dates: end: 20220306
  4. NONTHRON [Concomitant]
     Dosage: UNK
     Dates: start: 20220304, end: 20220309
  5. THROMBOMODULIN ALFA [Concomitant]
     Active Substance: THROMBOMODULIN ALFA
     Dosage: UNK
     Dates: start: 20220421, end: 20220426

REACTIONS (3)
  - Acute graft versus host disease [Fatal]
  - Thrombotic microangiopathy [Fatal]
  - Melaena [Not Recovered/Not Resolved]

NARRATIVE: CASE EVENT DATE: 20220421
